FAERS Safety Report 7980653-1 (Version None)
Quarter: 2011Q4

REPORT INFORMATION
  Report Type: 
  Country: None (occurrence: None)
  Receive Date: 20111214
  Receipt Date: 20111207
  Transmission Date: 20120403
  Serious: Yes (Other)
  Sender: FDA-Public Use
  Company Number: CHNY2011JP000480

PATIENT
  Age: 68 Year
  Sex: Male
  Weight: 61 kg

DRUGS (6)
  1. LORAZEPAM [Concomitant]
     Route: 048
  2. ROCURONIUM BROMIDE [Concomitant]
     Route: 042
  3. SENNOSIDE UNKNOWN MANUFACTURER [Suspect]
     Dosage: UNK
     Route: 048
  4. FENTANYL [Concomitant]
     Route: 042
  5. PROPOFOL [Concomitant]
     Route: 042
  6. REMIFENTANIL HYDROCHLORIDE [Concomitant]
     Route: 042

REACTIONS (2)
  - HAEMOLYSIS [None]
  - HAEMOGLOBINURIA [None]
